FAERS Safety Report 7768099-2 (Version None)
Quarter: 2011Q3

REPORT INFORMATION
  Report Type: 
  Country: None (occurrence: None)
  Receive Date: 20110922
  Receipt Date: 20110915
  Transmission Date: 20111222
  Serious: Yes (Death)
  Sender: FDA-Public Use
  Company Number: JP-BRISTOL-MYERS SQUIBB COMPANY-15192347

PATIENT
  Age: 70 Year
  Sex: Male
  Weight: 86 kg

DRUGS (14)
  1. FORSENID [Concomitant]
     Indication: PROPHYLAXIS
     Dosage: FORM: TABLET.
     Route: 048
     Dates: end: 20100621
  2. CYTARABINE [Concomitant]
     Indication: ACUTE LYMPHOCYTIC LEUKAEMIA
     Dosage: INJ
     Route: 037
     Dates: start: 20090924, end: 20091117
  3. ENTERONON-R [Concomitant]
     Indication: PROPHYLAXIS
     Dosage: POWDER
     Route: 048
     Dates: end: 20100621
  4. RABEPRAZOLE SODIUM [Concomitant]
     Indication: PROPHYLAXIS
     Dosage: FORM: TABLET.
     Route: 048
     Dates: end: 20100621
  5. DECADRON [Concomitant]
     Indication: ACUTE LYMPHOCYTIC LEUKAEMIA
     Dosage: INJ
     Route: 037
     Dates: start: 20090924, end: 20091117
  6. PREDNISOLONE [Concomitant]
     Indication: ACUTE LYMPHOCYTIC LEUKAEMIA
     Dosage: 16DC09-20DC;13JAN10-17JAN;10FB-14FB;10MAR-14MAR;7APR-11APR;30APR-4MAY;02JUN-06JUN10
     Route: 048
     Dates: start: 20091216, end: 20100606
  7. LASIX [Concomitant]
     Route: 048
     Dates: end: 20100621
  8. WARFARIN SODIUM [Concomitant]
     Dosage: FORM: TABLET.
     Route: 048
  9. METHOTREXATE [Concomitant]
     Indication: ACUTE LYMPHOCYTIC LEUKAEMIA
     Dosage: INJ
     Route: 037
     Dates: start: 20090924, end: 20091117
  10. ONCOVIN [Concomitant]
     Indication: ACUTE LYMPHOCYTIC LEUKAEMIA
     Dosage: 16DC09;13JAN10-13JAN;10FB-10FB;10MAR-10MAR;7APR-7APR;07MAY;02JUN-02JUN10
     Route: 042
     Dates: start: 20091216, end: 20100602
  11. MAGNESIUM SULFATE [Concomitant]
     Indication: PROPHYLAXIS
     Route: 048
     Dates: end: 20100621
  12. URINORM [Concomitant]
     Indication: PROPHYLAXIS
     Dosage: FORM: TABLET.
     Route: 048
     Dates: end: 20100621
  13. SPRYCEL [Suspect]
     Indication: ACUTE LYMPHOCYTIC LEUKAEMIA
     Dosage: 14SP-21OC09,17NOV09-07MAY10;17NV09-20DC09 (140MG) 28DC09-07MAY2010,REST:19MY10-21JUN10. 24SEP-21OC
     Route: 048
     Dates: start: 20090924, end: 20100621
  14. SULFAMETHOXAZOLE [Concomitant]
     Indication: PROPHYLAXIS
     Dosage: 1 D.F:2TABS
     Route: 048
     Dates: end: 20100621

REACTIONS (2)
  - PLEURAL EFFUSION [None]
  - NEOPLASM MALIGNANT [None]
